FAERS Safety Report 10368024 (Version 1)
Quarter: 2014Q3

REPORT INFORMATION
  Report Type: Spontaneous
  Country: US (occurrence: None)
  Receive Date: 20140806
  Receipt Date: 20140806
  Transmission Date: 20150326
  Serious: Yes (Hospitalization)
  Sender: FDA-Public Use
  Company Number: None

PATIENT
  Age: 26 Year
  Sex: Female

DRUGS (1)
  1. MIRENA [Suspect]
     Active Substance: LEVONORGESTREL
     Indication: CONTRACEPTION
     Dosage: IUD FOR 5 YEAR VAGINAL
     Route: 067
     Dates: start: 20130307, end: 20140609

REACTIONS (5)
  - Economic problem [None]
  - Kidney infection [None]
  - Impaired work ability [None]
  - Urinary tract infection [None]
  - Product label issue [None]

NARRATIVE: CASE EVENT DATE: 20130410
